FAERS Safety Report 16003368 (Version 13)
Quarter: 2021Q1

REPORT INFORMATION
  Report Type: Other
  Country: CA (occurrence: CA)
  Receive Date: 20190226
  Receipt Date: 20210319
  Transmission Date: 20210419
  Serious: Yes (Hospitalization, Disabling, Other)
  Sender: FDA-Public Use
  Company Number: CA-ROCHE-2266485

PATIENT
  Age: 50 Year
  Sex: Male
  Weight: 104.1 kg

DRUGS (41)
  1. DEXILANT [Concomitant]
     Active Substance: DEXLANSOPRAZOLE
     Indication: PRODUCT USED FOR UNKNOWN INDICATION
  2. PREDNISONE. [Concomitant]
     Active Substance: PREDNISONE
     Route: 048
     Dates: start: 201604
  3. PREDNISONE. [Concomitant]
     Active Substance: PREDNISONE
     Route: 048
     Dates: start: 201811
  4. METHYLPREDNISOLONE. [Concomitant]
     Active Substance: METHYLPREDNISOLONE
     Route: 048
  5. ACETYLSALICYLIC ACID [Concomitant]
     Active Substance: ASPIRIN
     Route: 048
  6. AVAMYS [Concomitant]
     Active Substance: FLUTICASONE FUROATE
     Indication: NASAL CONGESTION
  7. DOCUSATE SODIUM. [Concomitant]
     Active Substance: DOCUSATE SODIUM
     Indication: PRODUCT USED FOR UNKNOWN INDICATION
  8. PREGABALIN. [Concomitant]
     Active Substance: PREGABALIN
  9. RITUXAN [Suspect]
     Active Substance: RITUXIMAB
     Indication: NECROTISING MYOSITIS
     Route: 042
     Dates: start: 20190408
  10. CORTISONE [Concomitant]
     Active Substance: CORTISONE
     Indication: PRODUCT USED FOR UNKNOWN INDICATION
  11. DIPHENHYDRAMINE HCL [Concomitant]
     Active Substance: DIPHENHYDRAMINE HYDROCHLORIDE
     Indication: PREMEDICATION
     Route: 048
     Dates: start: 20190325
  12. BENADRYL [Concomitant]
     Active Substance: DIPHENHYDRAMINE HYDROCHLORIDE
     Route: 048
     Dates: start: 20190325
  13. DICYCLOMINE [Concomitant]
     Active Substance: DICYCLOMINE HYDROCHLORIDE
     Indication: PRODUCT USED FOR UNKNOWN INDICATION
  14. ACTONEL [Concomitant]
     Active Substance: RISEDRONATE SODIUM
     Indication: PRODUCT USED FOR UNKNOWN INDICATION
  15. PREDNISONE. [Concomitant]
     Active Substance: PREDNISONE
     Route: 048
  16. CLARITIN [Concomitant]
     Active Substance: LORATADINE
     Route: 048
     Dates: start: 20200514
  17. REFRESH PLUS [Concomitant]
     Active Substance: CARBOXYMETHYLCELLULOSE SODIUM
     Route: 047
  18. CELLCEPT [Suspect]
     Active Substance: MYCOPHENOLATE MOFETIL\MYCOPHENOLATE MOFETIL HYDROCHLORIDE
     Indication: NECROTISING MYOSITIS
     Route: 065
     Dates: start: 201607
  19. ISOPTIN [Concomitant]
     Active Substance: VERAPAMIL HYDROCHLORIDE
     Indication: PRODUCT USED FOR UNKNOWN INDICATION
  20. ACETAMINOPHEN. [Concomitant]
     Active Substance: ACETAMINOPHEN
     Indication: PREMEDICATION
     Route: 048
     Dates: start: 20190325
  21. CLARITINE [Concomitant]
     Active Substance: LORATADINE
     Indication: PREMEDICATION
     Route: 048
     Dates: start: 20200514
  22. BETADERM (CANADA) [Concomitant]
  23. OXYGEN. [Concomitant]
     Active Substance: OXYGEN
     Dosage: 2L AT REST?6L ON EXERTION
     Dates: start: 20200814
  24. RITUXAN [Suspect]
     Active Substance: RITUXIMAB
     Indication: PULMONARY FIBROSIS
     Route: 042
     Dates: start: 20190325
  25. METHYLPREDNISOLONE. [Concomitant]
     Active Substance: METHYLPREDNISOLONE
     Indication: PREMEDICATION
     Route: 042
     Dates: start: 20190325
  26. ACETAMINOPHEN. [Concomitant]
     Active Substance: ACETAMINOPHEN
     Indication: PREMEDICATION
     Route: 048
     Dates: start: 20200514
  27. VERAPAMIL [Concomitant]
     Active Substance: VERAPAMIL HYDROCHLORIDE
  28. CELLCEPT [Suspect]
     Active Substance: MYCOPHENOLATE MOFETIL\MYCOPHENOLATE MOFETIL HYDROCHLORIDE
     Indication: PULMONARY FIBROSIS
     Route: 065
     Dates: start: 2017
  29. NAPROSYN [Concomitant]
     Active Substance: NAPROXEN
  30. LYRICA [Concomitant]
     Active Substance: PREGABALIN
     Indication: PRODUCT USED FOR UNKNOWN INDICATION
  31. PREDNISONE. [Concomitant]
     Active Substance: PREDNISONE
     Route: 048
  32. BACTRIM [Concomitant]
     Active Substance: SULFAMETHOXAZOLE\TRIMETHOPRIM
  33. SINGULAIR [Concomitant]
     Active Substance: MONTELUKAST SODIUM
     Route: 048
     Dates: start: 20200514
  34. SUBLINOX [Concomitant]
     Active Substance: ZOLPIDEM TARTRATE
     Indication: PRODUCT USED FOR UNKNOWN INDICATION
  35. CALCIUM [Concomitant]
     Active Substance: CALCIUM
     Indication: PRODUCT USED FOR UNKNOWN INDICATION
  36. SOLU?MEDROL [Concomitant]
     Active Substance: METHYLPREDNISOLONE SODIUM SUCCINATE
     Dosage: ALTERNATE DAY 1 = 100MG?DAY 15 = 125MG
     Route: 042
     Dates: start: 20190325
  37. SOLU?MEDROL [Concomitant]
     Active Substance: METHYLPREDNISOLONE SODIUM SUCCINATE
     Route: 042
     Dates: start: 20190408
  38. TYLENOL [Concomitant]
     Active Substance: ACETAMINOPHEN
     Route: 048
     Dates: start: 20190325
  39. TOBRADEX [Concomitant]
     Active Substance: DEXAMETHASONE\TOBRAMYCIN
     Dosage: DROPS
  40. RISEDRONATE [Concomitant]
     Active Substance: RISEDRONATE SODIUM
     Indication: PRODUCT USED FOR UNKNOWN INDICATION
  41. ASPIRIN. [Concomitant]
     Active Substance: ASPIRIN
     Route: 048
     Dates: start: 20200514

REACTIONS (21)
  - Restrictive pulmonary disease [Not Recovered/Not Resolved]
  - Fatigue [Unknown]
  - Blood pressure diastolic increased [Unknown]
  - Overlap syndrome [Unknown]
  - Necrotising myositis [Unknown]
  - Epistaxis [Recovered/Resolved]
  - Pneumonia [Recovering/Resolving]
  - Asthenia [Unknown]
  - Fibrosis [Unknown]
  - Heart rate increased [Unknown]
  - Oxygen saturation decreased [Unknown]
  - Product use in unapproved indication [Unknown]
  - Cough [Not Recovered/Not Resolved]
  - Disability [Unknown]
  - Dyspnoea [Unknown]
  - Blood pressure increased [Unknown]
  - Infusion related reaction [Recovered/Resolved]
  - Off label use [Unknown]
  - Rhinitis [Unknown]
  - Bacterial infection [Unknown]
  - Blood pressure diastolic abnormal [Unknown]

NARRATIVE: CASE EVENT DATE: 201811
